FAERS Safety Report 6173156-0 (Version None)
Quarter: 2009Q2

REPORT INFORMATION
  Report Type: 
  Country: None (occurrence: None)
  Receive Date: 20090424
  Receipt Date: 20081216
  Transmission Date: 20091009
  Serious: No
  Sender: FDA-Public Use
  Company Number: ALL1-2008-03563

PATIENT
  Age: 53 Year
  Sex: Female
  Weight: 56.7 kg

DRUGS (6)
  1. VYVANSE [Suspect]
     Indication: ATTENTION DEFICIT/HYPERACTIVITY DISORDER
     Dosage: 30 MG, 1X/DAY:QD, ORAL
     Route: 048
     Dates: start: 20081201
  2. VYVANSE [Suspect]
     Indication: DEPRESSION
     Dosage: 30 MG, 1X/DAY:QD, ORAL
     Route: 048
     Dates: start: 20081201
  3. AVALIDE [Concomitant]
  4. CYMBALTA [Concomitant]
  5. TOPAMAX [Concomitant]
  6. PROTONIX [Concomitant]

REACTIONS (5)
  - FATIGUE [None]
  - FOOD CRAVING [None]
  - MALAISE [None]
  - NAUSEA [None]
  - OFF LABEL USE [None]
